FAERS Safety Report 10427346 (Version 2)
Quarter: 2014Q4

REPORT INFORMATION
  Report Type: Spontaneous
  Country: GR (occurrence: GR)
  Receive Date: 20140903
  Receipt Date: 20141009
  Transmission Date: 20150528
  Serious: Yes (Other)
  Sender: FDA-Public Use
  Company Number: ALCN2014GR004915

PATIENT
  Age: 76 Year
  Sex: Male

DRUGS (3)
  1. NEVANAC [Suspect]
     Active Substance: NEPAFENAC
     Indication: EYE INFLAMMATION
     Dosage: 1 GTT, TID
     Route: 047
  2. NEVANAC [Suspect]
     Active Substance: NEPAFENAC
     Indication: PROPHYLAXIS
     Dosage: 1 GTT, BID
     Route: 047
  3. NEVANAC [Suspect]
     Active Substance: NEPAFENAC
     Dosage: 1 GTT, QD
     Route: 047

REACTIONS (5)
  - Corneal oedema [Recovered/Resolved]
  - Retinal detachment [Recovered/Resolved]
  - Vitreous detachment [Recovered/Resolved]
  - Ciliary zonular dehiscence [Recovered/Resolved]
  - Off label use [Unknown]
